FAERS Safety Report 6907247-0 (Version None)
Quarter: 2010Q3

REPORT INFORMATION
  Report Type: 
  Country: None (occurrence: None)
  Receive Date: 20100802
  Receipt Date: 20100720
  Transmission Date: 20110219
  Serious: Yes (Hospitalization)
  Sender: FDA-Public Use
  Company Number: 2010MA001119

PATIENT
  Age: 79 Year
  Sex: Male

DRUGS (15)
  1. RAMIPRIL [Suspect]
     Indication: HYPERTENSION
     Dosage: 7.5 MG; QD; PO
     Route: 048
  2. FUROSEMIDE [Suspect]
     Indication: FLUID OVERLOAD
     Dosage: 40 MG; QD; PO
     Route: 048
  3. BENDROFLUMETHIAZIDE (BENDROFLUMETHIAZIDE) [Suspect]
     Indication: DIURETIC THERAPY
     Dosage: 2.5 MG; QD; PO
     Route: 048
  4. ATORVASTATIN CALCIUM [Suspect]
     Indication: HYPERCHOLESTEROLAEMIA
     Dosage: 20 MG; QD; PO
     Route: 048
     Dates: end: 20100712
  5. METFORMIN HCL [Suspect]
     Indication: DIABETES MELLITUS
     Dosage: 500 MG; TID; PO
     Route: 048
  6. OXYCODONE HCL [Suspect]
     Indication: BREAKTHROUGH PAIN
     Dosage: 10 MG; QID; PO
     Route: 048
     Dates: end: 20100712
  7. OXYCODONE HCL [Suspect]
     Indication: PHANTOM PAIN
     Dosage: 40 MG; BID; PO
     Route: 048
  8. RAMIPRIL [Concomitant]
  9. ACETYLSALICYLIC ACID SRT [Concomitant]
  10. METFORMIN HCL [Concomitant]
  11. FUROSEMIDE [Concomitant]
  12. BENDROFLUMETHIAZIDE [Concomitant]
  13. PREGABALIN [Concomitant]
  14. PARACETAMOL [Concomitant]
  15. DOXYCYCLINE [Concomitant]

REACTIONS (6)
  - BLOOD CREATINE PHOSPHOKINASE INCREASED [None]
  - CONFUSIONAL STATE [None]
  - MIOSIS [None]
  - RENAL IMPAIRMENT [None]
  - SOMNOLENCE [None]
  - WOUND [None]
